FAERS Safety Report 4827952-X (Version None)
Quarter: 2005Q4

REPORT INFORMATION
  Report Type: 
  Country: None (occurrence: None)
  Receive Date: 20051115
  Receipt Date: 20051101
  Transmission Date: 20060501
  Serious: Yes (Other)
  Sender: FDA-Public Use
  Company Number: FI-BOEHRINGER INGELHEIM PHARMACEUTICALS, INC.-2005-BP-19924YA

PATIENT
  Age: 75 Year

DRUGS (7)
  1. TAMSULOSIN CAPSULES [Suspect]
     Route: 048
  2. ASPIRIN [Concomitant]
  3. FLUTICASONE [Concomitant]
  4. SALBUTAMOL [Concomitant]
  5. SALMETEROL [Concomitant]
  6. PHENYLEPHRINE HYDROCHLORIDE [Concomitant]
     Indication: MYDRIASIS
     Route: 031
  7. TROPICAMIDE [Concomitant]
     Indication: MYDRIASIS
     Route: 031

REACTIONS (1)
  - IRIDOCELE [None]
